FAERS Safety Report 9468453 (Version 1)
Quarter: 2013Q3

REPORT INFORMATION
  Report Type: Spontaneous
  Country: US (occurrence: US)
  Receive Date: 20130821
  Receipt Date: 20130821
  Transmission Date: 20140515
  Serious: No
  Sender: FDA-Public Use
  Company Number: US-PFIZER INC-2013238413

PATIENT
  Age: 60 Year
  Sex: Female
  Weight: 61.2 kg

DRUGS (3)
  1. LEVOXYL [Suspect]
     Indication: THYROIDECTOMY
     Dosage: 100 UG, 1X/DAY
     Route: 048
  2. LEVOXYL [Suspect]
     Dosage: UNK, 1X/DAY
     Route: 048
  3. LEVOXYL [Suspect]
     Dosage: 150 UG, 1X/DAY
     Route: 048
     Dates: end: 201305

REACTIONS (1)
  - Drug ineffective [Unknown]
